FAERS Safety Report 9209785 (Version 2)
Quarter: 2013Q2

REPORT INFORMATION
  Report Type: Report from Study
  Country: PL (occurrence: PL)
  Receive Date: 20130404
  Receipt Date: 20130626
  Transmission Date: 20140414
  Serious: Yes (Hospitalization)
  Sender: FDA-Public Use
  Company Number: PL-ASTRAZENECA-2013SE21411

PATIENT
  Age: 16527 Day
  Sex: Male

DRUGS (13)
  1. ZD6474 [Suspect]
     Indication: MEDULLARY THYROID CANCER
     Dosage: BLINDED THERAPY
     Route: 048
     Dates: start: 20070724, end: 20100428
  2. ZD6474 [Suspect]
     Indication: THYROID CANCER METASTATIC
     Dosage: BLINDED THERAPY
     Route: 048
     Dates: start: 20070724, end: 20100428
  3. ZD6474 [Suspect]
     Indication: MEDULLARY THYROID CANCER
     Dosage: OPEN LABEL THERAPY 300 MG, DAILY
     Route: 048
     Dates: start: 20100429, end: 20130122
  4. ZD6474 [Suspect]
     Indication: THYROID CANCER METASTATIC
     Dosage: OPEN LABEL THERAPY 300 MG, DAILY
     Route: 048
     Dates: start: 20100429, end: 20130122
  5. KETONAL [Concomitant]
     Indication: PAIN
     Route: 048
     Dates: start: 20070703
  6. ELTROXIN [Concomitant]
     Indication: HYPOTHYROIDISM
     Route: 048
     Dates: end: 20070917
  7. ELTROXIN [Concomitant]
     Indication: HYPOTHYROIDISM
     Route: 048
     Dates: start: 20070918, end: 20080107
  8. ELTROXIN [Concomitant]
     Indication: HYPOTHYROIDISM
     Route: 048
     Dates: start: 20080108
  9. POLPRAZOL [Concomitant]
     Indication: DYSPEPSIA
     Route: 048
     Dates: start: 20071015
  10. ESSENTIALE FORTE [Concomitant]
     Indication: ASPARTATE AMINOTRANSFERASE INCREASED
  11. ESSENTIALE FORTE [Concomitant]
     Indication: ALANINE AMINOTRANSFERASE INCREASED
  12. CALPEROS [Concomitant]
     Indication: HYPOCALCAEMIA
  13. SYMFAXIN [Concomitant]
     Indication: DEPRESSION
     Route: 048
     Dates: start: 20130125

REACTIONS (1)
  - Blood creatinine increased [Not Recovered/Not Resolved]
